FAERS Safety Report 17003171 (Version 2)
Quarter: 2019Q4

REPORT INFORMATION
  Report Type: Report from Study
  Country: None (occurrence: GR)
  Receive Date: 20191107
  Receipt Date: 20191122
  Transmission Date: 20200122
  Serious: Yes (Death, Hospitalization)
  Sender: FDA-Public Use
  Company Number: GR-ABBVIE-19K-066-2992854-00

PATIENT
  Age: 85 Year
  Sex: Male
  Weight: 75 kg

DRUGS (4)
  1. DUODOPA [Suspect]
     Active Substance: CARBIDOPA\LEVODOPA
     Indication: PARKINSON^S DISEASE
     Dosage: MORNING DOSE: 6.1ML/H; CONTINUOUS RATE: 0.4ML/H; EXTRA DOSE: 1.8ML
     Route: 050
     Dates: start: 20180123
  2. MALICON [Concomitant]
     Indication: DEPRESSION
     Route: 048
  3. XANAX [Concomitant]
     Active Substance: ALPRAZOLAM
     Indication: INSOMNIA
     Route: 048
  4. PREZOLON [Concomitant]
     Active Substance: PREDNISOLONE
     Indication: ARTHRITIS
     Route: 048
     Dates: start: 20180131

REACTIONS (7)
  - Cardio-respiratory arrest [Fatal]
  - Communication disorder [Not Recovered/Not Resolved]
  - Parenteral nutrition [Not Recovered/Not Resolved]
  - Tracheostomy [Not Recovered/Not Resolved]
  - Respiratory tract infection [Recovered/Resolved]
  - Cerebral atrophy [Unknown]
  - Fluid replacement [Not Recovered/Not Resolved]

NARRATIVE: CASE EVENT DATE: 20191114
